FAERS Safety Report 10355889 (Version 1)
Quarter: 2014Q3

REPORT INFORMATION
  Report Type: Spontaneous
  Country: BR (occurrence: BR)
  Receive Date: 20140801
  Receipt Date: 20140801
  Transmission Date: 20150326
  Serious: Yes (Other)
  Sender: FDA-Public Use
  Company Number: BR-ACCORD-025031

PATIENT
  Age: 52 Year
  Sex: Male
  Weight: 71.9 kg

DRUGS (6)
  1. PACLITAXEL/PACLITAXEL LIPOSOME [Suspect]
     Active Substance: PACLITAXEL
     Indication: MALIGNANT MELANOMA
     Route: 042
     Dates: start: 20140609, end: 20140609
  2. NAUSEDRON [Concomitant]
     Active Substance: ONDANSETRON HYDROCHLORIDE
     Indication: PROPHYLAXIS
     Route: 042
     Dates: start: 20140609, end: 20140609
  3. DIFENIDRIN [Concomitant]
     Active Substance: DIPHENHYDRAMINE
     Indication: PROPHYLAXIS
     Dosage: SF 100 ML
     Route: 042
     Dates: start: 20140609, end: 20140609
  4. DEXAMETHASONE. [Concomitant]
     Active Substance: DEXAMETHASONE
     Indication: PROPHYLAXIS
     Dosage: SF 100 ML
     Route: 042
     Dates: start: 20140609, end: 20140609
  5. CARBOPLATIN. [Concomitant]
     Active Substance: CARBOPLATIN
     Indication: MALIGNANT MELANOMA
  6. RANITIDINE [Concomitant]
     Active Substance: RANITIDINE\RANITIDINE HYDROCHLORIDE
     Indication: PROPHYLAXIS
     Route: 042
     Dates: start: 20140609, end: 20140609

REACTIONS (5)
  - Abdominal pain [Recovering/Resolving]
  - Off label use [Unknown]
  - Musculoskeletal stiffness [Recovering/Resolving]
  - Muscle spasms [Recovering/Resolving]
  - Unresponsive to stimuli [Recovering/Resolving]

NARRATIVE: CASE EVENT DATE: 20140609
